FAERS Safety Report 20350739 (Version 1)
Quarter: 2022Q1

REPORT INFORMATION
  Report Type: Spontaneous
  Country: US (occurrence: US)
  Receive Date: 20220119
  Receipt Date: 20220119
  Transmission Date: 20220423
  Serious: No
  Sender: FDA-Public Use
  Company Number: US-GUERBET-US-20210154

PATIENT
  Age: 15 Year
  Sex: Female
  Weight: 63.5 kg

DRUGS (1)
  1. DOTAREM [Suspect]
     Active Substance: GADOTERATE MEGLUMINE
     Indication: Magnetic resonance imaging abdominal
     Route: 042
     Dates: start: 20211020, end: 20211020

REACTIONS (5)
  - Eye swelling [Recovered/Resolved]
  - Dyspnoea [Recovered/Resolved]
  - Nausea [Recovered/Resolved]
  - Erythema [Recovered/Resolved]
  - Product use in unapproved indication [Recovered/Resolved]

NARRATIVE: CASE EVENT DATE: 20211020
